FAERS Safety Report 21195172 (Version 1)
Quarter: 2022Q3

REPORT INFORMATION
  Report Type: Spontaneous
  Country: BE (occurrence: BE)
  Receive Date: 20220810
  Receipt Date: 20220810
  Transmission Date: 20221027
  Serious: Yes (Death, Other)
  Sender: FDA-Public Use
  Company Number: BE-PFIZER INC-PV202200038102

PATIENT
  Age: 8 Day
  Sex: Female

DRUGS (6)
  1. ERYTHROMYCIN [Suspect]
     Active Substance: ERYTHROMYCIN
     Indication: Encephalitis
     Dosage: UNK
  2. ERYTHROMYCIN [Suspect]
     Active Substance: ERYTHROMYCIN
     Indication: Necrosis
  3. GENTAMICIN [Suspect]
     Active Substance: GENTAMICIN
     Indication: Encephalitis
     Dosage: UNK
  4. GENTAMICIN [Suspect]
     Active Substance: GENTAMICIN
     Indication: Necrosis
  5. AMPICILLIN [Suspect]
     Active Substance: AMPICILLIN
     Indication: Encephalitis
     Dosage: UNK
  6. AMPICILLIN [Suspect]
     Active Substance: AMPICILLIN
     Indication: Necrosis

REACTIONS (3)
  - Bacillus infection [Fatal]
  - Encephalitis [Fatal]
  - Necrosis [Fatal]
